FAERS Safety Report 9786451 (Version 6)
Quarter: 2014Q4

REPORT INFORMATION
  Report Type: Spontaneous
  Country: US (occurrence: US)
  Receive Date: 20131227
  Receipt Date: 20141119
  Transmission Date: 20150529
  Serious: Yes (Hospitalization, Other)
  Sender: FDA-Public Use
  Company Number: US-009507513-1312USA009127

PATIENT
  Sex: Male
  Weight: 71.66 kg

DRUGS (8)
  1. FOSAMAX [Suspect]
     Active Substance: ALENDRONATE SODIUM
     Indication: OSTEOPOROSIS
     Dosage: UNK
     Route: 048
     Dates: start: 1998
  2. FOSAMAX PLUS D [Suspect]
     Active Substance: ALENDRONATE SODIUM\CHOLECALCIFEROL
     Dosage: 70 MG/5600 IU, UNK
     Route: 048
     Dates: start: 20071008, end: 20080103
  3. CHOLECALCIFEROL [Concomitant]
     Active Substance: CHOLECALCIFEROL
     Dosage: 1000 IU, QD
     Dates: start: 1999
  4. VITAMINS (UNSPECIFIED) [Concomitant]
     Active Substance: VITAMINS
     Dosage: UNK, QD
     Dates: start: 1999
  5. FOSAMAX PLUS D [Suspect]
     Active Substance: ALENDRONATE SODIUM\CHOLECALCIFEROL
     Dosage: 70 MG/2800 IU, UNK
     Route: 048
     Dates: start: 20070129, end: 20070702
  6. ALENDRONATE SODIUM. [Suspect]
     Active Substance: ALENDRONATE SODIUM
     Indication: OSTEOPOROSIS
     Dosage: 70 MG, UNK
     Route: 048
     Dates: start: 200803, end: 20100816
  7. FOSAMAX [Suspect]
     Active Substance: ALENDRONATE SODIUM
     Dosage: 10 MG, UNK
     Route: 048
     Dates: start: 200001, end: 200101
  8. FOSAMAX [Suspect]
     Active Substance: ALENDRONATE SODIUM
     Dosage: 70 MG, QW
     Route: 048
     Dates: start: 200101, end: 200803

REACTIONS (19)
  - Hyperlipidaemia [Unknown]
  - Benign prostatic hyperplasia [Unknown]
  - Parathyroidectomy [Unknown]
  - Atypical femur fracture [Recovering/Resolving]
  - Hypertension [Unknown]
  - Meniscus injury [Unknown]
  - Pulmonary embolism [Unknown]
  - Basal cell carcinoma [Unknown]
  - Wrist fracture [Unknown]
  - Bursitis [Unknown]
  - Wrist fracture [Unknown]
  - Fall [Unknown]
  - Hernia repair [Unknown]
  - Upper limb fracture [Unknown]
  - Ankle fracture [Unknown]
  - Supraventricular tachycardia [Recovered/Resolved]
  - Rib fracture [Unknown]
  - Limb asymmetry [Unknown]
  - Open reduction of fracture [Unknown]

NARRATIVE: CASE EVENT DATE: 2000
